FAERS Safety Report 17699714 (Version 2)
Quarter: 2020Q2

REPORT INFORMATION
  Report Type: Spontaneous
  Country: US (occurrence: US)
  Receive Date: 20200423
  Receipt Date: 20200501
  Transmission Date: 20200714
  Serious: Yes (Death)
  Sender: FDA-Public Use
  Company Number: US-CATALYST PHARMACEUTICALS, INC-2020CAT00164

PATIENT
  Sex: Male

DRUGS (10)
  1. FIRDAPSE [Suspect]
     Active Substance: AMIFAMPRIDINE
     Dosage: 15 MG, 3X/DAY BEFORE LUNCH, AT DINNER, AT BEDTIME
     Dates: start: 201905
  2. PROTONIX [Concomitant]
     Active Substance: PANTOPRAZOLE SODIUM
  3. UNSPECIFIED INSULIN [Concomitant]
     Active Substance: INSULIN NOS
  4. HYOSCYAMINE. [Concomitant]
     Active Substance: HYOSCYAMINE
  5. SCOPOLAMINE [Concomitant]
     Active Substance: SCOPOLAMINE
  6. DECADRON [Concomitant]
     Active Substance: DEXAMETHASONE
  7. MORPHINE [Concomitant]
     Active Substance: MORPHINE
  8. METFORMIN [Concomitant]
     Active Substance: METFORMIN HYDROCHLORIDE
  9. FIRDAPSE [Suspect]
     Active Substance: AMIFAMPRIDINE
     Indication: MYASTHENIC SYNDROME
     Dosage: 20 MG, 1X/DAY IN THE MORNING
     Dates: start: 201905
  10. UNSPECIFIED THYROID MEDICATION [Concomitant]
     Active Substance: UNSPECIFIED INGREDIENT

REACTIONS (1)
  - Neoplasm malignant [Fatal]
